FAERS Safety Report 18966003 (Version 1)
Quarter: 2021Q1

REPORT INFORMATION
  Report Type: Spontaneous
  Country: CA (occurrence: CA)
  Receive Date: 20210304
  Receipt Date: 20210304
  Transmission Date: 20210420
  Serious: Yes (Life-Threatening, Hospitalization, Disabling, Other)
  Sender: FDA-Public Use
  Company Number: CA-BAUSCH-BL-2021-006651

PATIENT
  Age: 56 Year
  Sex: Female
  Weight: 69 kg

DRUGS (16)
  1. METFORMIN [Suspect]
     Active Substance: METFORMIN HYDROCHLORIDE
     Indication: PRODUCT USED FOR UNKNOWN INDICATION
     Route: 048
  2. ALISKIRE [Suspect]
     Active Substance: ALISKIREN
     Indication: MICROALBUMINURIA
     Route: 065
  3. ESOMEPRAZOL [Suspect]
     Active Substance: ESOMEPRAZOLE
     Indication: PRODUCT USED FOR UNKNOWN INDICATION
     Route: 048
  4. VITAMIN B12 [Concomitant]
     Active Substance: CYANOCOBALAMIN
     Indication: PRODUCT USED FOR UNKNOWN INDICATION
     Route: 048
  5. ESOMEPRAZOL [Suspect]
     Active Substance: ESOMEPRAZOLE
     Route: 048
  6. METFORMIN [Suspect]
     Active Substance: METFORMIN HYDROCHLORIDE
     Indication: PRODUCT USED FOR UNKNOWN INDICATION
     Route: 065
  7. ALISKIRE [Suspect]
     Active Substance: ALISKIREN
     Indication: HYPERTENSION
     Route: 048
  8. ASPIRIN. [Suspect]
     Active Substance: ASPIRIN
     Route: 048
  9. JANUVIA [Suspect]
     Active Substance: SITAGLIPTIN PHOSPHATE
     Indication: PRODUCT USED FOR UNKNOWN INDICATION
     Route: 048
  10. IRBESARTAN. [Suspect]
     Active Substance: IRBESARTAN
     Indication: PRODUCT USED FOR UNKNOWN INDICATION
     Route: 065
  11. VITAMIN B12 [Concomitant]
     Active Substance: CYANOCOBALAMIN
     Dosage: 1 EVERY 1 DAYS
     Route: 048
  12. VITAMIN B12 [Concomitant]
     Active Substance: CYANOCOBALAMIN
     Dosage: 1 EVERY 1 DAYS
     Route: 048
  13. AMLODIPINE [Suspect]
     Active Substance: AMLODIPINE BESYLATE
     Indication: PRODUCT USED FOR UNKNOWN INDICATION
     Route: 048
  14. ASPIRIN. [Suspect]
     Active Substance: ASPIRIN
     Indication: PRODUCT USED FOR UNKNOWN INDICATION
     Route: 065
  15. ALISKIRE [Suspect]
     Active Substance: ALISKIREN
     Indication: OFF LABEL USE
     Route: 048
  16. IRBESARTAN. [Suspect]
     Active Substance: IRBESARTAN
     Route: 048

REACTIONS (22)
  - Carotid artery thrombosis [Recovered/Resolved]
  - Hemiplegia [Recovered/Resolved]
  - Anxiety [Recovered/Resolved]
  - Hemiparesis [Recovered/Resolved]
  - Muscle spasticity [Recovered/Resolved]
  - Adjustment disorder [Recovered/Resolved]
  - Dysphagia [Recovered/Resolved]
  - Muscular weakness [Recovered/Resolved]
  - Personality disorder [Recovered/Resolved]
  - Sensory loss [Recovered/Resolved]
  - Aphasia [Recovered/Resolved]
  - Coordination abnormal [Recovered/Resolved]
  - Nausea [Recovered/Resolved]
  - Affect lability [Recovered/Resolved]
  - Dysarthria [Recovered/Resolved]
  - Motor dysfunction [Recovered/Resolved]
  - Cerebrovascular accident [Recovered/Resolved]
  - Confusional state [Recovered/Resolved]
  - Neurologic neglect syndrome [Recovered/Resolved]
  - Eating disorder [Recovered/Resolved]
  - Fall [Recovered/Resolved]
  - Asthenia [Recovered/Resolved]
